FAERS Safety Report 4395464-6 (Version None)
Quarter: 2004Q3

REPORT INFORMATION
  Report Type: 
  Country: None (occurrence: None)
  Receive Date: 20040712
  Receipt Date: 20040712
  Transmission Date: 20050211
  Serious: Yes (Life-Threatening)
  Sender: FDA-Public Use
  Company Number: None

PATIENT
  Sex: Female
  Weight: 113.3993 kg

DRUGS (2)
  1. WELLBUTRIN SR [Suspect]
     Indication: DEPRESSION
     Dosage: 1 TABLET TWICE DAIL ORAL
     Route: 048
     Dates: start: 20030102, end: 20040430
  2. WELLBUTRIN XL [Suspect]
     Indication: DEPRESSION
     Dosage: 1 TABLET DAILY ORAL
     Route: 048
     Dates: start: 20040430, end: 20040605

REACTIONS (16)
  - ABNORMAL BEHAVIOUR [None]
  - AGGRESSION [None]
  - APATHY [None]
  - BIPOLAR I DISORDER [None]
  - CRYING [None]
  - DEPRESSION [None]
  - DISINHIBITION [None]
  - EMOTIONAL DISORDER [None]
  - FEAR [None]
  - HALLUCINATION [None]
  - IMPAIRED WORK ABILITY [None]
  - INSOMNIA [None]
  - LIBIDO INCREASED [None]
  - MANIA [None]
  - SUICIDAL IDEATION [None]
  - THINKING ABNORMAL [None]
